FAERS Safety Report 11746550 (Version 1)
Quarter: 2015Q4

REPORT INFORMATION
  Report Type: Spontaneous
  Country: CH (occurrence: CH)
  Receive Date: 20151117
  Receipt Date: 20151117
  Transmission Date: 20160304
  Serious: Yes (Hospitalization, Other)
  Sender: FDA-Public Use
  Company Number: CH-PFIZER INC-2015373743

PATIENT
  Age: 66 Year
  Sex: Male

DRUGS (1)
  1. SUTENT [Suspect]
     Active Substance: SUNITINIB MALATE
     Indication: METASTATIC RENAL CELL CARCINOMA
     Dosage: 50 MG, DAILY (4 WEEKS/6)
     Dates: start: 20120321, end: 20140515

REACTIONS (6)
  - Peritonitis [Unknown]
  - Ureteric injury [Unknown]
  - Radiation injury [Unknown]
  - Fistula [Unknown]
  - Large intestine perforation [Unknown]
  - Haematuria [Unknown]

NARRATIVE: CASE EVENT DATE: 201406
